FAERS Safety Report 6232867-9 (Version None)
Quarter: 2009Q2

REPORT INFORMATION
  Report Type: 
  Country: None (occurrence: None)
  Receive Date: 20090617
  Receipt Date: 20090226
  Transmission Date: 20091009
  Serious: No
  Sender: FDA-Public Use
  Company Number: US-ASTRAZENECA-2009UW05290

PATIENT
  Age: 67 Year
  Sex: Female
  Weight: 46.7 kg

DRUGS (3)
  1. FASLODEX [Suspect]
     Dosage: UNKNOWN
     Route: 030
  2. REGLAN [Concomitant]
  3. PHENYTOIN [Concomitant]

REACTIONS (5)
  - ABASIA [None]
  - CONSTIPATION [None]
  - INJECTION SITE DISCOMFORT [None]
  - MUSCULAR WEAKNESS [None]
  - WALKING AID USER [None]
